FAERS Safety Report 13332209 (Version 1)
Quarter: 2017Q1

REPORT INFORMATION
  Report Type: Spontaneous
  Country: US (occurrence: US)
  Receive Date: 20170314
  Receipt Date: 20170314
  Transmission Date: 20170428
  Serious: No
  Sender: FDA-Public Use
  Company Number: US-JNJFOC-20170224856

PATIENT
  Age: 8 Month
  Sex: Male
  Weight: 8.16 kg

DRUGS (1)
  1. CHILDRENS TYLENOL [Suspect]
     Active Substance: ACETAMINOPHEN
     Indication: PYREXIA
     Dosage: 2X FIVE HOURS APART
     Route: 048
     Dates: start: 20170222

REACTIONS (2)
  - Wrong technique in product usage process [Unknown]
  - Drug administration error [Unknown]

NARRATIVE: CASE EVENT DATE: 20170222
